FAERS Safety Report 8366604-9 (Version None)
Quarter: 2012Q2

REPORT INFORMATION
  Report Type: 
  Country: None (occurrence: None)
  Receive Date: 20120517
  Receipt Date: 20120509
  Transmission Date: 20120825
  Serious: Yes (Hospitalization)
  Sender: FDA-Public Use
  Company Number: ES-ASTRAZENECA-2012SE30428

PATIENT
  Age: 74 Year
  Sex: Female

DRUGS (10)
  1. HALOPERIDOL [Suspect]
     Indication: ABNORMAL BEHAVIOUR
     Route: 048
     Dates: start: 20120201, end: 20120201
  2. LYRICA [Concomitant]
     Route: 048
  3. SEROQUEL [Suspect]
     Indication: ABNORMAL BEHAVIOUR
     Route: 048
     Dates: start: 20120201, end: 20120201
  4. METFORMIN HCL [Concomitant]
     Route: 048
  5. LIORESAL [Concomitant]
     Route: 048
  6. METHOTREXATE [Concomitant]
     Route: 048
  7. DAFLON [Concomitant]
     Route: 048
  8. PROZAC [Concomitant]
     Route: 048
  9. SINTROM [Concomitant]
     Route: 048
  10. ALLOPURINOL [Concomitant]
     Route: 048

REACTIONS (1)
  - PARTIAL SEIZURES WITH SECONDARY GENERALISATION [None]
